FAERS Safety Report 9096878 (Version 1)
Quarter: 2013Q1

REPORT INFORMATION
  Report Type: Spontaneous
  Country: VE (occurrence: VE)
  Receive Date: 20130211
  Receipt Date: 20130211
  Transmission Date: 20140127
  Serious: Yes (Other)
  Sender: FDA-Public Use
  Company Number: VE-BAYER-2013-017168

PATIENT
  Age: 65 Year
  Sex: Male

DRUGS (4)
  1. AVELOX [Suspect]
     Indication: BRONCHITIS
     Dosage: 400 MG, QD
     Route: 048
     Dates: start: 20130130, end: 20130205
  2. HIPERLIPEN [Concomitant]
     Indication: BLOOD CHOLESTEROL INCREASED
     Dosage: UNK
     Dates: start: 2010
  3. CONCOR [Concomitant]
     Indication: TACHYCARDIA
     Dosage: 2.5 MG, QD
     Dates: start: 2010
  4. ACCUPRIL [Concomitant]
     Indication: HYPERTENSION
     Dosage: 5 MG, QD
     Dates: start: 2010

REACTIONS (1)
  - Conjunctival haemorrhage [Recovering/Resolving]
